FAERS Safety Report 6746564-4 (Version None)
Quarter: 2010Q2

REPORT INFORMATION
  Report Type: 
  Country: None (occurrence: None)
  Receive Date: 20100528
  Receipt Date: 20100521
  Transmission Date: 20101027
  Serious: Yes (Hospitalization)
  Sender: FDA-Public Use
  Company Number: US-ROCHE-701257

PATIENT
  Sex: Female
  Weight: 70.3 kg

DRUGS (7)
  1. CAPECITABINE [Suspect]
     Dosage: 14 DAYS ON AND 7 DAYS OFF.
     Route: 048
     Dates: start: 20100301, end: 20100314
  2. CAPECITABINE [Suspect]
     Dosage: 7 DAYS ON, 7 DAYS OFF
     Route: 048
     Dates: start: 20100426
  3. M.V.I. [Concomitant]
     Dosage: DOSE:1
     Route: 048
     Dates: start: 20091230, end: 20100430
  4. MAGNESIUM [Concomitant]
     Route: 048
     Dates: start: 20091230
  5. CALCIUM/VITAMIN D [Concomitant]
     Dosage: DOSE:1
     Route: 048
     Dates: start: 20091230
  6. ENALAPRIL MALEATE AND HYDROCHLOROTHIAZIDE [Concomitant]
     Indication: BLOOD PRESSURE
     Dosage: DOSE:35 DAILY
     Route: 048
     Dates: start: 20091230
  7. K-DUR [Concomitant]
     Indication: HYPONATRAEMIA
     Route: 048
     Dates: start: 20091230

REACTIONS (7)
  - ASTHENIA [None]
  - DEHYDRATION [None]
  - DIARRHOEA [None]
  - MUCOSAL INFLAMMATION [None]
  - RASH [None]
  - SMALL INTESTINAL OBSTRUCTION [None]
  - UPPER RESPIRATORY TRACT INFECTION [None]
